FAERS Safety Report 6145327-0 (Version None)
Quarter: 2009Q2

REPORT INFORMATION
  Report Type: 
  Country: None (occurrence: None)
  Receive Date: 20090406
  Receipt Date: 20090326
  Transmission Date: 20091009
  Serious: Yes (Other)
  Sender: FDA-Public Use
  Company Number: FR-ABBOTT-09P-056-0566346-00

PATIENT
  Age: 29 Year
  Sex: Female

DRUGS (9)
  1. RITONAVIR [Suspect]
     Indication: HIV INFECTION
     Route: 065
     Dates: start: 20050401
  2. FLUTICASONE PROPIONATE [Suspect]
     Indication: ASTHMA
     Route: 065
     Dates: start: 19960101
  3. TENOFOVIR [Concomitant]
     Indication: DRUG USE FOR UNKNOWN INDICATION
     Dates: start: 20050401
  4. ATAZANAVIR SULFATE [Concomitant]
     Indication: DRUG USE FOR UNKNOWN INDICATION
     Dates: start: 20050401
  5. NELFINAVIR MESILATE [Concomitant]
     Indication: DRUG USE FOR UNKNOWN INDICATION
  6. BECLOMETHASONE DIPROPIONATE [Concomitant]
     Indication: DRUG USE FOR UNKNOWN INDICATION
  7. ZIDOVUDINE [Concomitant]
     Indication: DRUG USE FOR UNKNOWN INDICATION
  8. DIDANOSINE [Concomitant]
     Indication: DRUG USE FOR UNKNOWN INDICATION
  9. NEVIRAPINE [Concomitant]
     Indication: DRUG USE FOR UNKNOWN INDICATION

REACTIONS (7)
  - AMENORRHOEA [None]
  - CUSHING'S SYNDROME [None]
  - DRUG INTERACTION [None]
  - MYALGIA [None]
  - NEUROPATHY PERIPHERAL [None]
  - SWELLING FACE [None]
  - WEIGHT INCREASED [None]
